FAERS Safety Report 23540123 (Version 1)
Quarter: 2024Q1

REPORT INFORMATION
  Report Type: Spontaneous
  Country: NO (occurrence: NO)
  Receive Date: 20240219
  Receipt Date: 20240219
  Transmission Date: 20240409
  Serious: Yes (Other)
  Sender: FDA-Public Use
  Company Number: None

PATIENT
  Age: 68 Year
  Sex: Female

DRUGS (1)
  1. ATORVASTATIN [Suspect]
     Active Substance: ATORVASTATIN
     Indication: Hypercholesterolaemia
     Dosage: C10AA05 - ATORVASTATIN -
     Route: 048
     Dates: start: 202206, end: 20220812

REACTIONS (5)
  - Syncope [Recovered/Resolved]
  - Myalgia [Recovered/Resolved]
  - Compression fracture [Recovered/Resolved]
  - Muscle spasms [Recovered/Resolved]
  - Blood pressure decreased [Recovered/Resolved]

NARRATIVE: CASE EVENT DATE: 20220812
